FAERS Safety Report 6479627-1 (Version None)
Quarter: 2009Q4

REPORT INFORMATION
  Report Type: 
  Country: None (occurrence: None)
  Receive Date: 20091207
  Receipt Date: 20091207
  Transmission Date: 20100525
  Serious: Yes (Hospitalization)
  Sender: FDA-Public Use
  Company Number: None

PATIENT
  Sex: Male
  Weight: 115.7 kg

DRUGS (2)
  1. CC-5013 LENALIDOMIDE [Suspect]
     Indication: PROSTATE CANCER
     Dosage: 25MGQD FOR 21 OF 28 DAYS
     Dates: start: 20080417
  2. KETOCONAZOLE [Suspect]
     Indication: PROSTATE CANCER
     Dosage: 400MG TID
     Dates: start: 20080417

REACTIONS (1)
  - DEEP VEIN THROMBOSIS [None]
